FAERS Safety Report 7801454-0 (Version None)
Quarter: 2011Q4

REPORT INFORMATION
  Report Type: 
  Country: None (occurrence: None)
  Receive Date: 20111007
  Receipt Date: 20110926
  Transmission Date: 20120403
  Serious: Yes (Hospitalization)
  Sender: FDA-Public Use
  Company Number: CA-JNJFOC-20110911486

PATIENT
  Sex: Female
  Weight: 79 kg

DRUGS (5)
  1. GRAVOL TAB [Concomitant]
     Indication: PREMEDICATION
     Route: 042
  2. REMICADE [Suspect]
     Indication: CROHN'S DISEASE
     Route: 042
     Dates: start: 20110802
  3. BENADRYL [Concomitant]
     Indication: PREMEDICATION
     Route: 042
  4. TYLENOL-500 [Concomitant]
     Indication: PREMEDICATION
     Route: 048
  5. REMICADE [Suspect]
     Route: 042
     Dates: start: 20110815

REACTIONS (2)
  - NEPHROLITHIASIS [None]
  - WHITE BLOOD CELL COUNT INCREASED [None]
